FAERS Safety Report 7392131-1 (Version None)
Quarter: 2011Q2

REPORT INFORMATION
  Report Type: 
  Country: None (occurrence: None)
  Receive Date: 20110404
  Receipt Date: 20101129
  Transmission Date: 20111010
  Serious: Yes (Hospitalization)
  Sender: FDA-Public Use
  Company Number: A0898789A

PATIENT

DRUGS (1)
  1. AVANDIA [Suspect]
     Indication: DIABETES MELLITUS
     Route: 048
     Dates: start: 20060310, end: 20070726

REACTIONS (4)
  - HEART RATE IRREGULAR [None]
  - CARDIAC FAILURE [None]
  - ASTHMA [None]
  - HAND FRACTURE [None]
